FAERS Safety Report 9907960 (Version 5)
Quarter: 2017Q1

REPORT INFORMATION
  Report Type: Spontaneous
  Country: CA (occurrence: CA)
  Receive Date: 20140219
  Receipt Date: 20170227
  Transmission Date: 20170429
  Serious: Yes (Other)
  Sender: FDA-Public Use
  Company Number: CA-ROCHE-1350797

PATIENT
  Age: 60 Year
  Sex: Female

DRUGS (7)
  1. SPIRIVA [Concomitant]
     Active Substance: TIOTROPIUM BROMIDE MONOHYDRATE
  2. PULMICORT TURBUHALER [Concomitant]
     Active Substance: BUDESONIDE
  3. XOLAIR [Suspect]
     Active Substance: OMALIZUMAB
     Route: 058
     Dates: start: 20170207
  4. SINGULAIR [Concomitant]
     Active Substance: MONTELUKAST SODIUM
  5. XOLAIR [Suspect]
     Active Substance: OMALIZUMAB
     Indication: ASTHMA
     Route: 058
     Dates: start: 20120501
  6. ALVESCO [Concomitant]
     Active Substance: CICLESONIDE
  7. XOLAIR [Suspect]
     Active Substance: OMALIZUMAB
     Route: 058

REACTIONS (7)
  - Malaise [Unknown]
  - Wheezing [Unknown]
  - Activities of daily living impaired [Unknown]
  - Urticaria [Recovered/Resolved]
  - Upper respiratory tract infection [Unknown]
  - Wrist fracture [Unknown]
  - Fall [Unknown]

NARRATIVE: CASE EVENT DATE: 201702
